FAERS Safety Report 9514254 (Version 2)
Quarter: 2013Q4

REPORT INFORMATION
  Report Type: Spontaneous
  Country: GB (occurrence: GB)
  Receive Date: 20130910
  Receipt Date: 20131101
  Transmission Date: 20140711
  Serious: Yes (Other)
  Sender: FDA-Public Use
  Company Number: GB-009507513-1309GBR001999

PATIENT
  Sex: Female

DRUGS (2)
  1. NEXPLANON [Suspect]
     Indication: CONTRACEPTION
     Dosage: UNK
     Route: 059
     Dates: start: 201206, end: 201306
  2. NEXPLANON [Suspect]
     Dosage: UNK
     Route: 059
     Dates: start: 201306

REACTIONS (4)
  - Hypersensitivity [Recovering/Resolving]
  - Hypersensitivity [Recovering/Resolving]
  - Device breakage [Recovering/Resolving]
  - Device kink [Recovering/Resolving]
